FAERS Safety Report 9332566 (Version 4)
Quarter: 2013Q3

REPORT INFORMATION
  Report Type: Spontaneous
  Country: ZA (occurrence: ZA)
  Receive Date: 20130603
  Receipt Date: 20130722
  Transmission Date: 20140515
  Serious: Yes (Hospitalization)
  Sender: FDA-Public Use
  Company Number: SYM-2013-04260

PATIENT
  Age: 47 Year
  Sex: Male

DRUGS (4)
  1. 5-FU (FLUOROURACIL) (SOLUTION FOR INFUSION) (FLOUROURACIL) [Suspect]
     Indication: COLORECTAL CANCER METASTATIC
     Dosage: 650 MG/M2 EVERY OTHER WEEK INTRAVENOUS BOLUS
     Route: 040
     Dates: start: 20130509, end: 20130509
  2. AFLIBERCEPT (AFLIBERCEPT) (SOLUTION FOR INFUSION) (AFLIBERCEPT) [Suspect]
     Indication: COLORECTAL CANCER METASTATIC
     Route: 041
     Dates: start: 20130508, end: 20130508
  3. IRINOTECAN (IRINOTECAN) (SOLUTION FOR INFUSION) (IRINOTECAN) [Suspect]
     Indication: COLORECTAL CANCER METASTATIC
     Dosage: 180 MG/M2 EVERY OTHER WEEK, INTRAVENOUS DRIP
     Route: 041
     Dates: start: 20130508, end: 20130508
  4. LEUCOVORIN (FOLINIC ACID) (SOLUTION FOR INFUSION) (FOLINIC ACID) [Suspect]
     Indication: COLORECTAL CANCER METASTATIC
     Dosage: 330 MG/M2 EVERY OTHER WEEK, INTRAVENOUS DRIP
     Route: 041
     Dates: start: 20130509, end: 20130509

REACTIONS (4)
  - Dehydration [None]
  - Diarrhoea [None]
  - Asthenia [None]
  - Pain [None]
